FAERS Safety Report 23476761 (Version 1)
Quarter: 2024Q1

REPORT INFORMATION
  Report Type: Report from Study
  Country: US (occurrence: US)
  Receive Date: 20240204
  Receipt Date: 20240204
  Transmission Date: 20240409
  Serious: No
  Sender: FDA-Public Use
  Company Number: US-EXELIXIS-CABO-23064279

PATIENT
  Age: 60 Year
  Sex: Female

DRUGS (2)
  1. CABOMETYX [Suspect]
     Active Substance: CABOZANTINIB S-MALATE
     Indication: Renal cancer
     Dosage: 40 MG, QD
     Route: 048
  2. OPDIVO [Suspect]
     Active Substance: NIVOLUMAB
     Indication: Renal cancer
     Dosage: UNK

REACTIONS (8)
  - Swelling [Recovering/Resolving]
  - Nausea [Recovering/Resolving]
  - Fatigue [Unknown]
  - Decreased appetite [Unknown]
  - Taste disorder [Unknown]
  - Diarrhoea [Unknown]
  - Arthralgia [Recovering/Resolving]
  - Blood pressure increased [Not Recovered/Not Resolved]

NARRATIVE: CASE EVENT DATE: 20230501
